FAERS Safety Report 22135296 (Version 2)
Quarter: 2023Q2

REPORT INFORMATION
  Report Type: Spontaneous
  Country: US (occurrence: US)
  Receive Date: 20230324
  Receipt Date: 20230425
  Transmission Date: 20230722
  Serious: No
  Sender: FDA-Public Use
  Company Number: US-SANOFI-01541672

PATIENT
  Age: 38 Year
  Sex: Male
  Weight: 56.69 kg

DRUGS (1)
  1. DUPIXENT [Suspect]
     Active Substance: DUPILUMAB
     Indication: Nasal polyps
     Dosage: 300 MG

REACTIONS (3)
  - Injection site urticaria [Unknown]
  - Injection site pruritus [Unknown]
  - Injection site swelling [Recovered/Resolved]
